FAERS Safety Report 8537402-8 (Version None)
Quarter: 2012Q3

REPORT INFORMATION
  Report Type: 
  Country: None (occurrence: None)
  Receive Date: 20120725
  Receipt Date: 20120718
  Transmission Date: 20120928
  Serious: Yes (Hospitalization)
  Sender: FDA-Public Use
  Company Number: CA-GLAXOSMITHKLINE-A0983429A

PATIENT
  Sex: Male
  Weight: 64.5 kg

DRUGS (2)
  1. VALTREX [Concomitant]
     Route: 048
  2. OFATUMUMAB [Suspect]
     Indication: CHRONIC LYMPHOCYTIC LEUKAEMIA
     Route: 042

REACTIONS (1)
  - PNEUMONIA [None]
